FAERS Safety Report 14778432 (Version 1)
Quarter: 2018Q2

REPORT INFORMATION
  Report Type: Spontaneous
  Country: US (occurrence: US)
  Receive Date: 20180419
  Receipt Date: 20180419
  Transmission Date: 20180711
  Serious: Yes (Hospitalization, Other)
  Sender: FDA-Public Use
  Company Number: US-LUPIN PHARMACEUTICALS INC.-2018-02986

PATIENT
  Age: 13 Year
  Sex: Female

DRUGS (1)
  1. MORPHINE [Suspect]
     Active Substance: MORPHINE
     Indication: PRODUCT USED FOR UNKNOWN INDICATION
     Dosage: UNK
     Route: 065

REACTIONS (8)
  - Hypoxia [Unknown]
  - Overdose [Unknown]
  - Acute kidney injury [Unknown]
  - Somnolence [Unknown]
  - Toxicity to various agents [Unknown]
  - Posterior reversible encephalopathy syndrome [Unknown]
  - Sickle cell anaemia with crisis [Unknown]
  - Acute respiratory distress syndrome [Unknown]
